FAERS Safety Report 8809259 (Version 1)
Quarter: 2012Q4

REPORT INFORMATION
  Report Type: 
  Country: US (occurrence: US)
  Receive Date: 20120926
  Receipt Date: 20120926
  Transmission Date: 20130627
  Serious: No
  Sender: FDA-Public Use
  Company Number: US-PFIZER INC-2012237225

PATIENT
  Age: 85 Year
  Sex: Male
  Weight: 68.03 kg

DRUGS (10)
  1. LYRICA [Suspect]
     Indication: PAIN
     Dosage: 50 mg, 2x/day
     Dates: start: 201208
  2. LYRICA [Suspect]
     Indication: BURNING SENSATION
  3. LYRICA [Suspect]
     Indication: LIMB DISCOMFORT
  4. LOSARTAN POTASSIUM [Concomitant]
     Indication: BLOOD PRESSURE ABNORMAL
     Dosage: 50 mg, daily
  5. ZOLPIDEM TARTRATE [Concomitant]
     Indication: INSOMNIA
     Dosage: 10 mg, daily
  6. CRESTOR [Concomitant]
     Dosage: 5 mg, daily
  7. TYLENOL [Concomitant]
     Indication: ARTHRALGIA
     Dosage: UNK, as needed
  8. CENTRUM SILVER [Concomitant]
     Dosage: UNK, daily
  9. ACETYLSALICYLIC ACID [Concomitant]
     Dosage: 81 mg, daily
  10. FISH OIL [Concomitant]
     Dosage: 2000 mg, daily

REACTIONS (1)
  - Drug ineffective [Unknown]
